FAERS Safety Report 6582782-6 (Version None)
Quarter: 2010Q1

REPORT INFORMATION
  Report Type: 
  Country: None (occurrence: None)
  Receive Date: 20100216
  Receipt Date: 20100204
  Transmission Date: 20100710
  Serious: Yes (Hospitalization)
  Sender: FDA-Public Use
  Company Number: DE-PFIZER INC-2009261149

PATIENT
  Age: 66 Year
  Sex: Female
  Weight: 69 kg

DRUGS (7)
  1. SOMATROPIN [Suspect]
     Indication: HYPOPITUITARISM
     Dosage: 0.2 MG, 1X/DAY
     Dates: start: 20051214, end: 20090801
  2. L-THYROXIN [Concomitant]
     Dosage: UNK
  3. HYDROCORTISONE [Concomitant]
     Dosage: UNK
  4. MINRIN [Concomitant]
     Dosage: UNK
  5. ISCOVER [Concomitant]
     Dosage: 75 MG, 1X/DAY
     Route: 048
  6. SIMVASTATIN [Concomitant]
     Dosage: 10 MG, 1X/DAY
     Route: 048
  7. PANTOZOL [Concomitant]
     Dosage: 20 MG, 1X/DAY
     Route: 048

REACTIONS (2)
  - NEOPLASM MALIGNANT [None]
  - OVARIAN CANCER [None]
